FAERS Safety Report 13304049 (Version 2)
Quarter: 2017Q1

REPORT INFORMATION
  Report Type: Spontaneous
  Country: GB (occurrence: GB)
  Receive Date: 20170308
  Receipt Date: 20170327
  Transmission Date: 20170428
  Serious: Yes (Life-Threatening)
  Sender: FDA-Public Use
  Company Number: GB-BAXTER-2017BAX009674

PATIENT
  Age: 13 Year
  Sex: Female

DRUGS (23)
  1. PIRITON [Suspect]
     Active Substance: CHLORPHENIRAMINE MALEATE
     Route: 042
     Dates: start: 20170221
  2. HEPARIN [Suspect]
     Active Substance: HEPARIN SODIUM
     Dosage: CONTINUOUS DOSE 500 UNITS/HR
     Route: 010
  3. PREDNISOLONE. [Concomitant]
     Active Substance: PREDNISOLONE
     Indication: HIV INFECTION
     Route: 048
  4. LAMIVUDINE. [Concomitant]
     Active Substance: LAMIVUDINE
     Indication: PRODUCT USED FOR UNKNOWN INDICATION
     Route: 048
  5. DARBEPOETIN ALFA [Concomitant]
     Active Substance: DARBEPOETIN ALFA
     Indication: HIV INFECTION
     Route: 042
  6. KALETRA [Concomitant]
     Active Substance: LOPINAVIR\RITONAVIR
     Indication: PRODUCT USED FOR UNKNOWN INDICATION
     Dosage: 1 DF, (1 TABLET)
     Route: 048
  7. HEPARIN [Suspect]
     Active Substance: HEPARIN SODIUM
     Indication: ANTICOAGULANT THERAPY
     Dosage: INITIAL DOSE 500 UNITS/HR
     Route: 010
  8. ASPIRIN. [Concomitant]
     Active Substance: ASPIRIN
     Indication: PRODUCT USED FOR UNKNOWN INDICATION
     Route: 048
  9. SODIUM CHLORIDE INTRAVENOUS INFUSION BP 0.9% W/V [Suspect]
     Active Substance: SODIUM CHLORIDE
     Indication: HAEMODIALYSIS
     Route: 010
  10. SODIUM CHLORIDE INTRAVENOUS INFUSION BP 0.9% W/V [Suspect]
     Active Substance: SODIUM CHLORIDE
     Indication: DEVICE PRIMING
  11. TACROLIMUS. [Concomitant]
     Active Substance: TACROLIMUS
     Indication: END STAGE RENAL DISEASE
     Route: 048
  12. PIRITON [Suspect]
     Active Substance: CHLORPHENIRAMINE MALEATE
     Indication: ADVERSE EVENT
     Route: 048
     Dates: start: 20170221
  13. VENOFER [Concomitant]
     Active Substance: IRON SUCROSE
     Indication: END STAGE RENAL DISEASE
  14. TACROLIMUS. [Concomitant]
     Active Substance: TACROLIMUS
     Indication: HIV INFECTION
  15. NIFEDIPINE. [Suspect]
     Active Substance: NIFEDIPINE
     Indication: ADVERSE EVENT
     Route: 065
     Dates: start: 20170221
  16. CODEINE [Suspect]
     Active Substance: CODEINE
     Indication: ADVERSE EVENT
     Route: 065
     Dates: start: 20170221
  17. VENOFER [Concomitant]
     Active Substance: IRON SUCROSE
     Indication: HIV INFECTION
     Route: 042
  18. ALPHACALCIDOL [Concomitant]
     Active Substance: ALFACALCIDOL
     Indication: PRODUCT USED FOR UNKNOWN INDICATION
     Route: 048
  19. HYDROCORTISONE SODIUM SUCCINATE [Suspect]
     Active Substance: HYDROCORTISONE SODIUM SUCCINATE
     Indication: ADVERSE EVENT
     Route: 042
     Dates: start: 20170221
  20. DARBEPOETIN ALFA [Concomitant]
     Active Substance: DARBEPOETIN ALFA
     Indication: END STAGE RENAL DISEASE
  21. PREDNISOLONE. [Concomitant]
     Active Substance: PREDNISOLONE
     Indication: END STAGE RENAL DISEASE
  22. CALCIUM ACETATE. [Concomitant]
     Active Substance: CALCIUM ACETATE
     Indication: PRODUCT USED FOR UNKNOWN INDICATION
     Route: 048
  23. ABACAVIR. [Concomitant]
     Active Substance: ABACAVIR
     Indication: PRODUCT USED FOR UNKNOWN INDICATION
     Route: 048

REACTIONS (8)
  - Rash [Unknown]
  - Ocular hyperaemia [Unknown]
  - Ocular icterus [Unknown]
  - Haemolysis [Unknown]
  - Swelling face [Unknown]
  - Abdominal pain [Unknown]
  - Haemodialysis complication [Unknown]
  - Blood pressure systolic increased [Unknown]

NARRATIVE: CASE EVENT DATE: 20170221
